FAERS Safety Report 7718822-8 (Version None)
Quarter: 2011Q3

REPORT INFORMATION
  Report Type: 
  Country: None (occurrence: None)
  Receive Date: 20110830
  Receipt Date: 20110822
  Transmission Date: 20111222
  Serious: Yes (Death)
  Sender: FDA-Public Use
  Company Number: NL-ACTELION-A-CH2011-52798

PATIENT
  Sex: Female
  Weight: 44 kg

DRUGS (7)
  1. LASIX [Concomitant]
  2. AMOXICILLIN [Concomitant]
  3. SPIRONOLACTONE [Concomitant]
  4. AMIODARONE HCL [Concomitant]
  5. MONO CEDOCARD [Concomitant]
  6. TRACLEER [Suspect]
     Indication: PULMONARY ARTERIAL HYPERTENSION
     Dosage: 125 MG, BID
     Route: 048
     Dates: end: 20110801
  7. TRACLEER [Suspect]
     Dosage: 62.5 MG, BID
     Route: 048
     Dates: start: 20060101

REACTIONS (2)
  - PNEUMONIA [None]
  - CARDIAC FAILURE [None]
